FAERS Safety Report 15941042 (Version 2)
Quarter: 2019Q1

REPORT INFORMATION
  Report Type: Spontaneous
  Country: CH (occurrence: CH)
  Receive Date: 20190208
  Receipt Date: 20190323
  Transmission Date: 20190417
  Serious: Yes (Other)
  Sender: FDA-Public Use
  Company Number: CH-REGENERON PHARMACEUTICALS, INC.-2019-15398

PATIENT

DRUGS (2)
  1. EYLEA [Suspect]
     Active Substance: AFLIBERCEPT
     Dosage: ONCE, DOSE WAS NOT REPORTED
     Route: 031
     Dates: start: 20190124, end: 20190124
  2. EYLEA [Suspect]
     Active Substance: AFLIBERCEPT
     Indication: PRODUCT USED FOR UNKNOWN INDICATION
     Dosage: ONCE, DOSE WAS NOT REPORTED
     Route: 031
     Dates: start: 20181227, end: 20181227

REACTIONS (7)
  - Renal failure [Unknown]
  - Pyrexia [Unknown]
  - Haematuria [Unknown]
  - Panniculitis [Unknown]
  - Pyrexia [Unknown]
  - Proteinuria [Unknown]
  - Transaminases increased [Unknown]

NARRATIVE: CASE EVENT DATE: 20181229
